FAERS Safety Report 5813788-X (Version None)
Quarter: 2008Q3

REPORT INFORMATION
  Report Type: 
  Country: None (occurrence: None)
  Receive Date: 20080717
  Receipt Date: 20080710
  Transmission Date: 20090109
  Serious: Yes (Hospitalization)
  Sender: FDA-Public Use
  Company Number: FR-AVENTIS-200812663FR

PATIENT
  Age: 2 Year
  Sex: Female
  Weight: 12 kg

DRUGS (6)
  1. FLAGYL [Suspect]
     Indication: PHARYNGEAL ABSCESS
     Route: 042
     Dates: start: 20080602, end: 20080607
  2. ROCEPHIN [Suspect]
     Indication: PHARYNGEAL ABSCESS
     Route: 042
     Dates: start: 20080602, end: 20080604
  3. BRISTOPEN                          /00040801/ [Suspect]
     Indication: PHARYNGEAL ABSCESS
     Route: 042
     Dates: start: 20080602, end: 20080604
  4. AUGMENTIN '125' [Concomitant]
  5. ACETAMINOPHEN [Concomitant]
  6. TIORFAN [Concomitant]

REACTIONS (1)
  - AGRANULOCYTOSIS [None]
